FAERS Safety Report 16446826 (Version 1)
Quarter: 2019Q2

REPORT INFORMATION
  Report Type: Spontaneous
  Country: GB (occurrence: GB)
  Receive Date: 20190618
  Receipt Date: 20190618
  Transmission Date: 20190711
  Serious: Yes (Death)
  Sender: FDA-Public Use
  Company Number: GB-FERRINGPH-2019FE03594

PATIENT

DRUGS (2)
  1. FIRMAGON [Suspect]
     Active Substance: DEGARELIX ACETATE
     Indication: PRODUCT USED FOR UNKNOWN INDICATION
     Dosage: 120 MG, ONCE/SINGLE
     Route: 065
     Dates: start: 20190611, end: 20190611
  2. FIRMAGON [Suspect]
     Active Substance: DEGARELIX ACETATE
     Dosage: 120 MG, ONCE/SINGLE
     Route: 065
     Dates: start: 20190610, end: 20190610

REACTIONS (2)
  - Rectal haemorrhage [Fatal]
  - Product use issue [Unknown]

NARRATIVE: CASE EVENT DATE: 20190610
